FAERS Safety Report 24351208 (Version 1)
Quarter: 2024Q3

REPORT INFORMATION
  Report Type: Report from Study
  Country: UY (occurrence: UY)
  Receive Date: 20240923
  Receipt Date: 20240923
  Transmission Date: 20241017
  Serious: No
  Sender: ROCHE
  Company Number: UY-ROCHE-2932845

PATIENT
  Age: 55 Year
  Sex: Female

DRUGS (1)
  1. HERCEPTIN [Suspect]
     Active Substance: TRASTUZUMAB
     Indication: Breast cancer
     Dosage: LAST DOSE OF HERCEPTIN PRIOR TO ONSET 600 MG.?DATE OF MOST RECENT DOSE OF HERCEPTIN PRIOR TO AE ONSE
     Route: 041
     Dates: start: 20201007, end: 20210927

REACTIONS (1)
  - Ejection fraction decreased [Recovering/Resolving]

NARRATIVE: CASE EVENT DATE: 20211008
